FAERS Safety Report 5392183-4 (Version None)
Quarter: 2007Q3

REPORT INFORMATION
  Report Type: 
  Country: None (occurrence: None)
  Receive Date: 20070717
  Receipt Date: 20070717
  Transmission Date: 20080115
  Serious: No
  Sender: FDA-Public Use
  Company Number: None

PATIENT
  Age: 48 Year
  Sex: Female
  Weight: 63.5036 kg

DRUGS (1)
  1. MEFLOQUINE [Suspect]
     Indication: MALARIA PROPHYLAXIS
     Dosage: 1 ONCE A WEEK PO
     Route: 048
     Dates: start: 20070507, end: 20070702

REACTIONS (4)
  - MYALGIA [None]
  - PAIN IN EXTREMITY [None]
  - SWELLING [None]
  - TENDONITIS [None]
